FAERS Safety Report 4334984-7 (Version None)
Quarter: 2004Q2

REPORT INFORMATION
  Report Type: 
  Country: None (occurrence: None)
  Receive Date: 20040408
  Receipt Date: 20040317
  Transmission Date: 20050107
  Serious: Yes (Life-Threatening)
  Sender: FDA-Public Use
  Company Number: JP-ROCHE-361907

PATIENT
  Age: 72 Year
  Sex: Male

DRUGS (5)
  1. PANALDINE [Suspect]
     Indication: MYOCARDIAL INFARCTION
     Route: 048
     Dates: start: 20040127, end: 20040302
  2. RENIVACE [Concomitant]
     Route: 048
     Dates: start: 20040128
  3. ASPIRIN [Concomitant]
     Route: 048
     Dates: start: 20040128
  4. ULCERLMIN [Concomitant]
     Route: 048
     Dates: start: 20040128
  5. SIGMART [Concomitant]
     Route: 048
     Dates: start: 20040128

REACTIONS (1)
  - ACUTE RESPIRATORY DISTRESS SYNDROME [None]
